FAERS Safety Report 23555177 (Version 1)
Quarter: 2024Q1

REPORT INFORMATION
  Report Type: Spontaneous
  Country: PT (occurrence: PT)
  Receive Date: 20240222
  Receipt Date: 20240222
  Transmission Date: 20240410
  Serious: Yes (Other)
  Sender: FDA-Public Use
  Company Number: PT-PAIPHARMA-2024-PT-000005

PATIENT
  Age: 77 Year
  Sex: Female

DRUGS (2)
  1. FORTAZ [Suspect]
     Active Substance: CEFTAZIDIME SODIUM
     Indication: Vascular device infection
     Dosage: 2000 MG DAILY
  2. VANCOMYCIN [Concomitant]
     Active Substance: VANCOMYCIN
     Dosage: 500 MG DAILY

REACTIONS (1)
  - Neurotoxicity [Unknown]
